FAERS Safety Report 6539219-2 (Version None)
Quarter: 2010Q1

REPORT INFORMATION
  Report Type: 
  Country: None (occurrence: None)
  Receive Date: 20100115
  Receipt Date: 20100105
  Transmission Date: 20100710
  Serious: No
  Sender: FDA-Public Use
  Company Number: US-ELI_LILLY_AND_COMPANY-US201001000896

PATIENT
  Sex: Female

DRUGS (1)
  1. ZYPREXA [Suspect]
     Indication: BIPOLAR DISORDER
     Dosage: 2.5 MG, DAILY (1/D)
     Dates: start: 20070101

REACTIONS (4)
  - AMBLYOPIA [None]
  - GINGIVAL BLEEDING [None]
  - GINGIVAL RECESSION [None]
  - VISUAL IMPAIRMENT [None]
